FAERS Safety Report 7104714-4 (Version None)
Quarter: 2010Q4

REPORT INFORMATION
  Report Type: 
  Country: None (occurrence: None)
  Receive Date: 20101116
  Receipt Date: 20101111
  Transmission Date: 20110411
  Serious: Yes (Hospitalization, Other)
  Sender: FDA-Public Use
  Company Number: US-BAYER-201038408NA

PATIENT
  Age: 26 Year

DRUGS (3)
  1. BETASERON [Suspect]
     Indication: RELAPSING-REMITTING MULTIPLE SCLEROSIS
     Route: 065
     Dates: start: 19980101
  2. NOVANTRONE [Concomitant]
  3. CHEMOTHERAPY [Concomitant]

REACTIONS (5)
  - INJECTION SITE ATROPHY [None]
  - INJECTION SITE NECROSIS [None]
  - INJECTION SITE SCAR [None]
  - MULTIPLE SCLEROSIS RELAPSE [None]
  - VOMITING [None]
